FAERS Safety Report 10160979 (Version 1)
Quarter: 2014Q2

REPORT INFORMATION
  Report Type: Spontaneous
  Country: US (occurrence: US)
  Receive Date: 20140508
  Receipt Date: 20140508
  Transmission Date: 20141212
  Serious: Yes (Death)
  Sender: FDA-Public Use
  Company Number: US-BAXTER-2014BAX022318

PATIENT
  Age: 80 Year
  Sex: Female
  Weight: 126 kg

DRUGS (4)
  1. PRISMASOL BK 0/0 [Suspect]
     Indication: SEPTIC SHOCK
     Route: 010
     Dates: start: 20140415, end: 20140419
  2. PRISMASOL BK 0/0 [Suspect]
     Indication: RENAL FAILURE ACUTE
  3. PRISMASOL BK 0/0 [Suspect]
     Indication: RENAL REPLACEMENT THERAPY
  4. 0.9% SODIUM CHLORIDE INJECTION [Suspect]
     Indication: CATHETER MANAGEMENT
     Dosage: 1-2 LITERS
     Route: 010
     Dates: start: 20140415, end: 20140419

REACTIONS (3)
  - Cardiac arrest [Fatal]
  - Haemodialysis complication [Not Recovered/Not Resolved]
  - Medical device complication [None]
